FAERS Safety Report 13681936 (Version 1)
Quarter: 2017Q2

REPORT INFORMATION
  Report Type: Spontaneous
  Country: US (occurrence: US)
  Receive Date: 20170623
  Receipt Date: 20170623
  Transmission Date: 20170830
  Serious: Yes (Hospitalization)
  Sender: FDA-Public Use
  Company Number: None

PATIENT
  Age: 12 Year
  Sex: Female
  Weight: 32 kg

DRUGS (1)
  1. SPINRAZA [Suspect]
     Active Substance: NUSINERSEN
     Indication: SPINAL MUSCULAR ATROPHY
     Dosage: DOSE AMOUNT - 12 MG/5 ML?DATES OF USE - 10MAY17, 24MAY17, 07JUN17
     Route: 037

REACTIONS (2)
  - Pleocytosis [None]
  - Meningitis [None]

NARRATIVE: CASE EVENT DATE: 20170607
